FAERS Safety Report 21556603 (Version 2)
Quarter: 2022Q4

REPORT INFORMATION
  Report Type: Report from Study
  Country: EG (occurrence: EG)
  Receive Date: 20221104
  Receipt Date: 20221115
  Transmission Date: 20230113
  Serious: Yes (Other)
  Sender: FDA-Public Use
  Company Number: EG-002147023-NVSC2022EG245007

PATIENT
  Sex: Male

DRUGS (2)
  1. HYRIMOZ [Suspect]
     Active Substance: ADALIMUMAB-ADAZ
     Indication: Colitis ulcerative
     Dosage: 160 MG AT WEEK ZERO AND 80 MG AT WEEK 2 THEN 40 MG EVERY 2 WEEKS
     Route: 065
     Dates: start: 20220320, end: 202207
  2. PENTASA [Concomitant]
     Active Substance: MESALAMINE
     Indication: Colitis ulcerative
     Dosage: 2 DOSAGE FORM AFTER MEALS (START DATE: 2 AND HALF YEARS AGO)
     Route: 065

REACTIONS (3)
  - Large intestinal haemorrhage [Recovering/Resolving]
  - Dyschezia [Recovering/Resolving]
  - Drug ineffective [Unknown]
